FAERS Safety Report 20069311 (Version 1)
Quarter: 2021Q4

REPORT INFORMATION
  Report Type: Spontaneous
  Country: GB (occurrence: GB)
  Receive Date: 20211115
  Receipt Date: 20211115
  Transmission Date: 20220303
  Serious: Yes (Hospitalization, Other)
  Sender: FDA-Public Use
  Company Number: None

PATIENT
  Age: 18 Year
  Sex: Female

DRUGS (6)
  1. DOXYCYCLINE [Suspect]
     Active Substance: DOXYCYCLINE
     Indication: Lower respiratory tract infection
     Dosage: 200MG STAT THEN 100MG DAILY
     Route: 048
     Dates: start: 20211006, end: 20211006
  2. DOXYCYCLINE [Suspect]
     Active Substance: DOXYCYCLINE
     Dosage: 200MG STAT THEN 100MG DAILY
     Route: 048
     Dates: start: 20211007, end: 20211012
  3. ADRENALINE (EPINEPHRINE) INJECTION BP 1:1000 [Concomitant]
     Dosage: CARRIES FOR PEANUT ALLERGY. 300MICROGRAMS/0.3ML (1 IN 1,000)
     Route: 030
  4. COMIRNATY [Concomitant]
     Active Substance: TOZINAMERAN
     Dosage: DOSE 1, SINGLE
     Route: 030
     Dates: start: 20210625, end: 20210625
  5. COMIRNATY [Concomitant]
     Active Substance: TOZINAMERAN
     Dosage: DOSE 2, SINGLE
     Route: 030
     Dates: start: 20210829, end: 20210829
  6. LANSOPRAZOLE [Concomitant]
     Active Substance: LANSOPRAZOLE
     Dosage: 15MG OD
     Route: 048
     Dates: start: 20211006

REACTIONS (1)
  - Oesophageal perforation [Recovering/Resolving]
